FAERS Safety Report 6476955-0 (Version None)
Quarter: 2009Q4

REPORT INFORMATION
  Report Type: 
  Country: None (occurrence: None)
  Receive Date: 20091204
  Receipt Date: 20091204
  Transmission Date: 20100525
  Serious: Yes (Life-Threatening, Hospitalization, Disabling, Other)
  Sender: FDA-Public Use
  Company Number: None

PATIENT
  Age: 11 Month
  Sex: Male
  Weight: 9.9791 kg

DRUGS (5)
  1. ONDANSETRON [Suspect]
     Indication: PYREXIA
     Dosage: APPLY FULL SYRINGE EVERY SIX HOURS TOLD TO RUB IT ON
     Dates: start: 20091016, end: 20091016
  2. ONDANSETRON [Suspect]
     Indication: VIRAL INFECTION
     Dosage: APPLY FULL SYRINGE EVERY SIX HOURS TOLD TO RUB IT ON
     Dates: start: 20091016, end: 20091016
  3. ONDANSETRON [Suspect]
     Indication: VOMITING
     Dosage: APPLY FULL SYRINGE EVERY SIX HOURS TOLD TO RUB IT ON
     Dates: start: 20091016, end: 20091016
  4. MOTRIN [Concomitant]
  5. TYLENOL (CAPLET) [Concomitant]

REACTIONS (6)
  - CHILD MALTREATMENT SYNDROME [None]
  - CONVULSION [None]
  - HEMIPARESIS [None]
  - RETINAL HAEMORRHAGE [None]
  - SUBDURAL HAEMORRHAGE [None]
  - VENOUS THROMBOSIS [None]
